FAERS Safety Report 4782910-9 (Version None)
Quarter: 2005Q3

REPORT INFORMATION
  Report Type: 
  Country: None (occurrence: None)
  Receive Date: 20050928
  Receipt Date: 20050928
  Transmission Date: 20060218
  Serious: Yes (Life-Threatening, Hospitalization, Disabling)
  Sender: FDA-Public Use
  Company Number: None

PATIENT
  Age: 68 Year
  Sex: Female
  Weight: 59.8748 kg

DRUGS (1)
  1. BONIVA [Suspect]
     Indication: OSTEOPENIA
     Dosage: 150 MG ONCE PER MONTH PO
     Route: 048
     Dates: start: 20050613, end: 20050813

REACTIONS (3)
  - CAROTID ARTERY OCCLUSION [None]
  - NAUSEA [None]
  - THROMBOTIC STROKE [None]
